FAERS Safety Report 4823973-1 (Version None)
Quarter: 2005Q4

REPORT INFORMATION
  Report Type: 
  Country: None (occurrence: None)
  Receive Date: 20051109
  Receipt Date: 20051028
  Transmission Date: 20060501
  Serious: Yes (Hospitalization)
  Sender: FDA-Public Use
  Company Number: US-JNJFOC-20051002214

PATIENT
  Sex: Female
  Weight: 49.9 kg

DRUGS (2)
  1. REMICADE [Suspect]
     Dosage: 2 VIALS
     Route: 042
  2. REMICADE [Suspect]
     Indication: RHEUMATOID ARTHRITIS
     Dosage: ^2^
     Route: 042

REACTIONS (5)
  - ABASIA [None]
  - ANAEMIA [None]
  - ASTHENIA [None]
  - BLOOD URINE PRESENT [None]
  - INFECTION [None]
